FAERS Safety Report 6310282-7 (Version None)
Quarter: 2009Q3

REPORT INFORMATION
  Report Type: 
  Country: None (occurrence: None)
  Receive Date: 20090814
  Receipt Date: 20090805
  Transmission Date: 20100115
  Serious: Yes (Other)
  Sender: FDA-Public Use
  Company Number: PHHY2009BR15256

PATIENT
  Age: 31 Year
  Sex: Female

DRUGS (3)
  1. TRILEPTAL [Suspect]
     Indication: CONVULSION
     Dosage: 1 TABLET IN THE MORNING AND 2 TABLETS AT NIGHT
     Route: 048
  2. TRILEPTAL [Suspect]
     Dosage: 1 TABLET IN THE MORNING AND 2 TABLETS AT NIGHT
     Route: 048
     Dates: start: 20090416, end: 20090418
  3. TRILEPTAL [Suspect]
     Dosage: 1 TABLET IN THE MORNING AND 2 TABLETS AT NIGHT
     Route: 048
     Dates: start: 20090418

REACTIONS (12)
  - ABNORMAL BEHAVIOUR [None]
  - BODY TEMPERATURE DECREASED [None]
  - CONVULSION [None]
  - DAYDREAMING [None]
  - DYSPNOEA [None]
  - DYSSTASIA [None]
  - HYPOPHAGIA [None]
  - IMMOBILE [None]
  - LACK OF SPONTANEOUS SPEECH [None]
  - PETIT MAL EPILEPSY [None]
  - TREMOR [None]
  - URINARY INCONTINENCE [None]
